FAERS Safety Report 6899935-X (Version None)
Quarter: 2010Q3

REPORT INFORMATION
  Report Type: 
  Country: None (occurrence: None)
  Receive Date: 20100803
  Receipt Date: 20100726
  Transmission Date: 20110219
  Serious: Yes (Death, Life-Threatening)
  Sender: FDA-Public Use
  Company Number: TR-SANOFI-AVENTIS-2010SA020512

PATIENT
  Age: 53 Year
  Sex: Male

DRUGS (8)
  1. PLAVIX [Suspect]
     Route: 048
     Dates: start: 20100326, end: 20100326
  2. PLAVIX [Suspect]
     Route: 048
     Dates: start: 20100327, end: 20100407
  3. ASPIRIN [Concomitant]
     Indication: PRODUCT USED FOR UNKNOWN INDICATION
  4. METOPROLOL [Concomitant]
     Indication: PRODUCT USED FOR UNKNOWN INDICATION
  5. RAMIPRIL [Concomitant]
     Indication: PRODUCT USED FOR UNKNOWN INDICATION
  6. CLEXANE [Concomitant]
     Indication: PRODUCT USED FOR UNKNOWN INDICATION
  7. ATORVASTATIN [Concomitant]
     Indication: PRODUCT USED FOR UNKNOWN INDICATION
  8. FAMOTIDINE [Concomitant]
     Indication: PRODUCT USED FOR UNKNOWN INDICATION
     Dosage: DOSE:1 UNIT(S)

REACTIONS (5)
  - DRUG INEFFECTIVE [None]
  - MYOCARDIAL INFARCTION [None]
  - OVERDOSE [None]
  - PRODUCT QUALITY ISSUE [None]
  - THROMBOSIS IN DEVICE [None]
